FAERS Safety Report 16366430 (Version 1)
Quarter: 2019Q2

REPORT INFORMATION
  Report Type: Spontaneous
  Country: DE (occurrence: DE)
  Receive Date: 20190529
  Receipt Date: 20190529
  Transmission Date: 20190711
  Serious: Yes (Hospitalization, Other)
  Sender: FDA-Public Use
  Company Number: DE-TEVA-2019-DE-1055518

PATIENT
  Age: 60 Year
  Sex: Female

DRUGS (10)
  1. PANTOPRAZOL [Concomitant]
     Active Substance: PANTOPRAZOLE SODIUM
  2. ROXITHROMYCIN 300 MG [Suspect]
     Active Substance: ROXITHROMYCIN
     Route: 048
     Dates: start: 20170317
  3. LAMOTRIGIN [Concomitant]
     Active Substance: LAMOTRIGINE
  4. HALOPERIDOL. [Concomitant]
     Active Substance: HALOPERIDOL
  5. L-THYROXIN 100 [Concomitant]
     Active Substance: LEVOTHYROXINE SODIUM
  6. OLANZAPIN [Concomitant]
     Active Substance: OLANZAPINE
  7. IBUPROFEN 600 MG [Concomitant]
     Active Substance: IBUPROFEN
  8. HYDROCHLOROTHIAZID [Concomitant]
     Active Substance: HYDROCHLOROTHIAZIDE
  9. BIPERIDEN [Concomitant]
     Active Substance: BIPERIDEN
  10. QUETIAPIN-RATIOPHARM 400 MG RETARDTABLETTEN [Suspect]
     Active Substance: QUETIAPINE
     Indication: SCHIZOAFFECTIVE DISORDER
     Route: 048
     Dates: start: 201702

REACTIONS (11)
  - Arthralgia [Unknown]
  - Dyspnoea [Unknown]
  - Anaphylactoid reaction [Unknown]
  - Lupus-like syndrome [Unknown]
  - Product substitution issue [Unknown]
  - Oedema [Unknown]
  - Nausea [Unknown]
  - Vomiting [Unknown]
  - Headache [Unknown]
  - Joint swelling [Unknown]
  - Rash [Unknown]

NARRATIVE: CASE EVENT DATE: 2017
